FAERS Safety Report 5054629-0 (Version None)
Quarter: 2006Q3

REPORT INFORMATION
  Report Type: 
  Country: None (occurrence: None)
  Receive Date: 20060719
  Receipt Date: 20060710
  Transmission Date: 20061208
  Serious: Yes (Hospitalization)
  Sender: FDA-Public Use
  Company Number: FR-JNJFOC-20060701926

PATIENT
  Age: 39 Year
  Sex: Male

DRUGS (6)
  1. REMICADE [Suspect]
     Indication: DRUG USE FOR UNKNOWN INDICATION
     Dosage: 1 INFUSION
     Route: 042
  2. TOPALGIC [Concomitant]
     Route: 048
  3. CORTANCYL [Concomitant]
     Route: 048
  4. CORTANCYL [Concomitant]
     Route: 048
  5. CORTANCYL [Concomitant]
     Route: 048
  6. CORTICOTHERAPY [Concomitant]
     Route: 042

REACTIONS (4)
  - ALANINE AMINOTRANSFERASE INCREASED [None]
  - C-REACTIVE PROTEIN INCREASED [None]
  - CHOLESTASIS [None]
  - ERYTHEMA [None]
